FAERS Safety Report 6297418-1 (Version None)
Quarter: 2009Q3

REPORT INFORMATION
  Report Type: 
  Country: None (occurrence: None)
  Receive Date: 20090805
  Receipt Date: 20090714
  Transmission Date: 20100115
  Serious: No
  Sender: FDA-Public Use
  Company Number: US-BAYER-200917316NA

PATIENT
  Age: 30 Year
  Sex: Female
  Weight: 68 kg

DRUGS (4)
  1. ULTRAVIST (PHARMACY BULK) [Suspect]
     Indication: COMPUTERISED TOMOGRAM ABDOMEN
     Dosage: TOTAL DAILY DOSE: 100 ML  UNIT DOSE: 500 ML
     Route: 042
     Dates: start: 20090318, end: 20090318
  2. KLONOPIN [Concomitant]
  3. LAMICTAL [Concomitant]
  4. GASTROVIST [Concomitant]
     Dosage: TOTAL DAILY DOSE: 30 ML
     Route: 048
     Dates: start: 20090318, end: 20090318

REACTIONS (1)
  - URTICARIA [None]
